FAERS Safety Report 7771456-1 (Version None)
Quarter: 2011Q3

REPORT INFORMATION
  Report Type: 
  Country: None (occurrence: None)
  Receive Date: 20110922
  Receipt Date: 20110426
  Transmission Date: 20111222
  Serious: No
  Sender: FDA-Public Use
  Company Number: US-ASTRAZENECA-2011SE24363

PATIENT
  Age: 28 Year
  Sex: Female
  Weight: 79.4 kg

DRUGS (3)
  1. BIRTH CONTROL [Concomitant]
     Route: 048
  2. SEROQUEL [Suspect]
     Indication: BIPOLAR I DISORDER
     Route: 048
     Dates: start: 20110421
  3. CELEXA [Concomitant]
     Indication: DEPRESSION
     Route: 048

REACTIONS (3)
  - PARAESTHESIA [None]
  - HYPOAESTHESIA [None]
  - ANXIETY [None]
